FAERS Safety Report 18208137 (Version 1)
Quarter: 2020Q3

REPORT INFORMATION
  Report Type: Spontaneous
  Country: US (occurrence: US)
  Receive Date: 20200828
  Receipt Date: 20200828
  Transmission Date: 20201103
  Serious: Yes (Disabling, Other)
  Sender: FDA-Public Use
  Company Number: None

PATIENT
  Age: 59 Year
  Sex: Male

DRUGS (1)
  1. OMEPRAZOLE DR 20 MG CAPSULE [Suspect]
     Active Substance: OMEPRAZOLE
     Indication: GASTROOESOPHAGEAL REFLUX DISEASE
     Dosage: ?          QUANTITY:1 CAPSULE(S);?
     Route: 048
     Dates: start: 20200719, end: 20200809

REACTIONS (4)
  - Hypophagia [None]
  - Drug ineffective [None]
  - Product taste abnormal [None]
  - Abdominal pain upper [None]

NARRATIVE: CASE EVENT DATE: 20200719
